FAERS Safety Report 12685429 (Version 1)
Quarter: 2016Q3

REPORT INFORMATION
  Report Type: Spontaneous
  Country: CA (occurrence: CA)
  Receive Date: 20160825
  Receipt Date: 20160825
  Transmission Date: 20161109
  Serious: Yes (Other)
  Sender: FDA-Public Use
  Company Number: CA-PFIZER INC-2016402055

PATIENT
  Age: 55 Year
  Sex: Female

DRUGS (2)
  1. METHOTREXATE SODIUM. [Suspect]
     Active Substance: METHOTREXATE SODIUM
     Dosage: UNK
     Route: 065
  2. ENBREL [Interacting]
     Active Substance: ETANERCEPT
     Dosage: UNK
     Route: 065

REACTIONS (6)
  - Drug ineffective [Unknown]
  - Pain [Unknown]
  - Condition aggravated [Unknown]
  - Muscle spasms [Unknown]
  - Rheumatoid arthritis [Unknown]
  - Drug interaction [Unknown]
